FAERS Safety Report 17881380 (Version 1)
Quarter: 2020Q2

REPORT INFORMATION
  Report Type: Spontaneous
  Country: US (occurrence: US)
  Receive Date: 20200610
  Receipt Date: 20200610
  Transmission Date: 20200714
  Serious: No
  Sender: FDA-Public Use
  Company Number: US-BAYER-2020-110391

PATIENT
  Age: 79 Year
  Sex: Male

DRUGS (1)
  1. LOTRIMIN ULTRA [Suspect]
     Active Substance: BUTENAFINE HYDROCHLORIDE
     Indication: THERAPEUTIC SKIN CARE TOPICAL
     Dosage: UNK UNK, QD
     Route: 061
     Dates: start: 2020

REACTIONS (1)
  - Rebound effect [Unknown]

NARRATIVE: CASE EVENT DATE: 2020
